FAERS Safety Report 6039540-0 (Version None)
Quarter: 2009Q1

REPORT INFORMATION
  Report Type: 
  Country: None (occurrence: None)
  Receive Date: 20090116
  Receipt Date: 20090106
  Transmission Date: 20090719
  Serious: Yes (Other)
  Sender: FDA-Public Use
  Company Number: US-JNJFOC-20081104392

PATIENT
  Sex: Female

DRUGS (2)
  1. PREZISTA [Suspect]
     Route: 048
  2. PREZISTA [Suspect]
     Indication: HIV INFECTION
     Route: 048

REACTIONS (2)
  - RASH [None]
  - THROAT TIGHTNESS [None]
